FAERS Safety Report 6696470-9 (Version None)
Quarter: 2010Q2

REPORT INFORMATION
  Report Type: 
  Country: None (occurrence: None)
  Receive Date: 20100426
  Receipt Date: 20100416
  Transmission Date: 20101027
  Serious: Yes (Other)
  Sender: FDA-Public Use
  Company Number: US-JNJFOC-20100404624

PATIENT
  Sex: Female
  Weight: 56.7 kg

DRUGS (10)
  1. FENTANYL-100 [Suspect]
     Indication: BACK PAIN
     Route: 062
  2. FENTANYL-100 [Suspect]
     Route: 062
  3. FENTANYL CITRATE [Suspect]
     Indication: BACK PAIN
     Dosage: NDC 0781724455
     Route: 062
  4. LISINOPRIL [Concomitant]
     Indication: BLOOD PRESSURE
     Route: 048
  5. NORVASC [Concomitant]
     Indication: BLOOD PRESSURE
     Route: 048
  6. COREG [Concomitant]
     Indication: BLOOD PRESSURE
     Route: 048
  7. NORCO [Concomitant]
     Indication: PAIN
     Dosage: 10/325 MG, TWICE DAILY AS NEEDED
     Route: 048
  8. PRILOSEC [Concomitant]
     Indication: GASTROENTERITIS
     Route: 048
  9. AMRIX [Concomitant]
     Indication: PAIN
     Dosage: 1 MG ONCE DAILY AS NEEDED
     Route: 048
  10. NEURONTIN [Concomitant]
     Indication: PAIN
     Route: 048

REACTIONS (2)
  - DEPRESSION [None]
  - WRONG TECHNIQUE IN DRUG USAGE PROCESS [None]
